FAERS Safety Report 6862188-2 (Version None)
Quarter: 2010Q2

REPORT INFORMATION
  Report Type: 
  Country: None (occurrence: None)
  Receive Date: 20100526
  Receipt Date: 20100420
  Transmission Date: 20101027
  Serious: Yes (Other)
  Sender: FDA-Public Use
  Company Number: 2010SCPR000535

PATIENT
  Age: 13 Year
  Sex: Female

DRUGS (2)
  1. RISPERIDONE [Suspect]
     Indication: PSYCHOTIC DISORDER
     Dosage: BID 0.5 MG, BID
  2. BENZTROPINE MESYLATE [Concomitant]

REACTIONS (5)
  - COGNITIVE DISORDER [None]
  - HYPERPROLACTINAEMIA [None]
  - PARKINSONISM [None]
  - SOMNOLENCE [None]
  - WEIGHT INCREASED [None]
